FAERS Safety Report 4875614-5 (Version None)
Quarter: 2005Q4

REPORT INFORMATION
  Report Type: 
  Country: None (occurrence: None)
  Receive Date: 20051205
  Receipt Date: 20050908
  Transmission Date: 20060501
  Serious: Yes (Hospitalization)
  Sender: FDA-Public Use
  Company Number: 2005-132319-NL

PATIENT
  Age: 39 Year
  Sex: Female
  Weight: 103.6 kg

DRUGS (2)
  1. NUVARING [Suspect]
     Indication: CONTRACEPTION
     Dosage: VAGINAL
     Route: 067
     Dates: start: 20020604, end: 20021216
  2. AMBIEN [Concomitant]

REACTIONS (1)
  - DEEP VEIN THROMBOSIS [None]
